FAERS Safety Report 8355918-4 (Version None)
Quarter: 2012Q2

REPORT INFORMATION
  Report Type: 
  Country: None (occurrence: None)
  Receive Date: 20120511
  Receipt Date: 20120511
  Transmission Date: 20120825
  Serious: Yes (Life-Threatening, Hospitalization, Disabling)
  Sender: FDA-Public Use
  Company Number: None

PATIENT
  Age: 63 Year
  Sex: Female
  Weight: 99.7913 kg

DRUGS (2)
  1. SEROQUEL [Suspect]
     Indication: BIPOLAR DISORDER
     Dates: start: 20080401, end: 20110401
  2. ABILIFY [Suspect]

REACTIONS (3)
  - MUSCULOSKELETAL PAIN [None]
  - MUSCLE TWITCHING [None]
  - DRUG INEFFECTIVE [None]
